FAERS Safety Report 24292952 (Version 1)
Quarter: 2024Q3

REPORT INFORMATION
  Report Type: Spontaneous
  Country: US (occurrence: None)
  Receive Date: 20240906
  Receipt Date: 20240906
  Transmission Date: 20241017
  Serious: No
  Sender: DOMPE FARMACEUTICI
  Company Number: US-FARMAPROD-202311-3276

PATIENT
  Sex: Male

DRUGS (12)
  1. OXERVATE [Suspect]
     Active Substance: CENEGERMIN-BKBJ
     Indication: Neurotrophic keratopathy
     Route: 047
     Dates: start: 20231011
  2. OXERVATE [Suspect]
     Active Substance: CENEGERMIN-BKBJ
  3. VALACYCLOVIR [Concomitant]
     Active Substance: VALACYCLOVIR HYDROCHLORIDE
  4. DOXYCYCLINE HYCLATE [Concomitant]
     Active Substance: DOXYCYCLINE HYCLATE
  5. VITAMIN D3 [Concomitant]
     Active Substance: CHOLECALCIFEROL
  6. PREDNISONE [Concomitant]
     Active Substance: PREDNISONE
  7. FUROSEMIDE [Concomitant]
     Active Substance: FUROSEMIDE
  8. ELIQUIS [Concomitant]
     Active Substance: APIXABAN
  9. FARXIGA [Concomitant]
     Active Substance: DAPAGLIFLOZIN PROPANEDIOL
  10. BISOPROLOL FUMARATE [Concomitant]
     Active Substance: BISOPROLOL FUMARATE
  11. MAXITROL [Concomitant]
     Active Substance: DEXAMETHASONE\NEOMYCIN SULFATE\POLYMYXIN B SULFATE
     Dosage: 3.5-10K-.1
  12. TOBRADEX ST [Concomitant]
     Active Substance: DEXAMETHASONE\TOBRAMYCIN
     Dosage: 0.3%-0.05%

REACTIONS (1)
  - Illness [Unknown]
